FAERS Safety Report 7822154-7 (Version None)
Quarter: 2011Q4

REPORT INFORMATION
  Report Type: 
  Country: None (occurrence: None)
  Receive Date: 20111018
  Receipt Date: 20110803
  Transmission Date: 20120403
  Serious: No
  Sender: FDA-Public Use
  Company Number: US-ASTRAZENECA-2010SE28306

PATIENT
  Age: 47 Year
  Sex: Female

DRUGS (23)
  1. ACCOLATE [Suspect]
     Route: 048
  2. LOPRESSOR [Concomitant]
  3. MULTI-VITAMIN [Concomitant]
     Dosage: DAILY
  4. LASIX [Concomitant]
     Dates: end: 20100830
  5. LEVAQUIN [Concomitant]
     Dates: start: 20101019
  6. MEDROL [Concomitant]
     Dates: start: 20101019
  7. PROTONIX [Concomitant]
     Dates: start: 20110408
  8. LASIX [Concomitant]
  9. ZOVIRZX [Concomitant]
     Indication: ORAL HERPES
  10. LORTAB [Concomitant]
     Indication: PAIN
     Dosage: 10/326 AS NEED
  11. DIOVAN [Concomitant]
  12. ZOMIG [Suspect]
     Indication: MIGRAINE
     Route: 045
  13. PROTONIX [Concomitant]
     Dates: end: 20100515
  14. ZOCOR [Concomitant]
  15. BENADRYL [Concomitant]
     Dosage: ONE AT BEDTIME
  16. ALBUTEROL [Concomitant]
     Dosage: 2 PUFFS EVERY 4 HOURS
  17. MYLANTA [Concomitant]
     Dosage: ONE TSP 40 MIN AFTER MEALS FOUR TIME A DAY
     Dates: start: 20100720
  18. PLENDIL [Suspect]
     Route: 048
  19. LORATADINE [Concomitant]
  20. PRILOSEC [Concomitant]
     Dates: start: 20100515, end: 20100720
  21. DUONEB [Concomitant]
     Dosage: AS NEED
  22. SYMBICORT [Suspect]
     Dosage: 160/4.5 MCG TWP PUFFS TWICE DAILY
     Route: 055
     Dates: start: 20100518
  23. METOLAZONE [Concomitant]
     Dosage: HALF HOUR

REACTIONS (4)
  - RASH [None]
  - ASTHMA [None]
  - DRUG HYPERSENSITIVITY [None]
  - OEDEMA PERIPHERAL [None]
